FAERS Safety Report 7777453-4 (Version None)
Quarter: 2011Q3

REPORT INFORMATION
  Report Type: 
  Country: None (occurrence: None)
  Receive Date: 20110926
  Receipt Date: 20110916
  Transmission Date: 20111222
  Serious: Yes (Hospitalization, Other)
  Sender: FDA-Public Use
  Company Number: JP-ABBOTT-11P-087-0856269-00

PATIENT
  Sex: Female

DRUGS (8)
  1. MESALAMINE [Concomitant]
     Indication: CROHN'S DISEASE
     Route: 048
  2. FERROUS CITRATE [Concomitant]
     Indication: ANAEMIA
     Route: 048
  3. DEXAMETHASONE [Concomitant]
     Indication: CROHN'S DISEASE
     Route: 061
     Dates: start: 20110301, end: 20110314
  4. FAMOTIDINE [Concomitant]
     Indication: PROPHYLAXIS
     Route: 048
  5. HUMIRA [Suspect]
     Dates: start: 20101208
  6. HUMIRA [Suspect]
     Dates: start: 20101124, end: 20101124
  7. HUMIRA [Suspect]
     Indication: CROHN'S DISEASE
     Route: 058
     Dates: start: 20101110, end: 20101110
  8. CLOSTRIDIUM BUTYRICUM [Concomitant]
     Indication: CROHN'S DISEASE
     Route: 048

REACTIONS (6)
  - MALAISE [None]
  - CROHN'S DISEASE [None]
  - C-REACTIVE PROTEIN INCREASED [None]
  - WHITE BLOOD CELL COUNT INCREASED [None]
  - RASH ERYTHEMATOUS [None]
  - STOMATITIS [None]
